FAERS Safety Report 7089452-9 (Version None)
Quarter: 2010Q4

REPORT INFORMATION
  Report Type: 
  Country: None (occurrence: None)
  Receive Date: 20101108
  Receipt Date: 20101028
  Transmission Date: 20110411
  Serious: Yes (Other)
  Sender: FDA-Public Use
  Company Number: US-JNJFOC-20101101260

PATIENT
  Age: 49 Year
  Sex: Female

DRUGS (1)
  1. LEVAQUIN [Suspect]
     Indication: OROPHARYNGEAL PAIN
     Route: 048

REACTIONS (2)
  - FOOT DEFORMITY [None]
  - TENDON RUPTURE [None]
